FAERS Safety Report 9849054 (Version 1)
Quarter: 2014Q1

REPORT INFORMATION
  Report Type: Spontaneous
  Country: US (occurrence: None)
  Receive Date: 20140124
  Receipt Date: 20140124
  Transmission Date: 20141002
  Serious: Yes (Other)
  Sender: FDA-Public Use
  Company Number: None

PATIENT
  Age: 5 Year
  Sex: Male
  Weight: 18.6 kg

DRUGS (2)
  1. IPRATROPIUM + ALBUTEROL [Suspect]
     Indication: ASTHMA
     Dates: start: 20140112
  2. IPRATROPIUM + ALBUTEROL [Suspect]
     Indication: PNEUMONIA
     Dates: start: 20140112

REACTIONS (1)
  - Rash generalised [None]
